FAERS Safety Report 4577751-1 (Version None)
Quarter: 2005Q1

REPORT INFORMATION
  Report Type: 
  Country: None (occurrence: None)
  Receive Date: 20050209
  Receipt Date: 20050126
  Transmission Date: 20050727
  Serious: Yes (Death, Hospitalization)
  Sender: FDA-Public Use
  Company Number: 2004AL000561

PATIENT
  Age: 61 Year
  Sex: Female

DRUGS (8)
  1. KADIAN [Suspect]
     Dosage: PO
     Route: 048
  2. LORAZEPAM [Suspect]
     Dosage: PO
     Route: 048
  3. CAPITAL AND CODEINE [Suspect]
     Dosage: PO
     Route: 048
  4. IBUPROFEN [Suspect]
     Dosage: PO
     Route: 048
  5. IBUPROFEN [Suspect]
     Dosage: PO
     Route: 048
  6. BACLOFEN [Suspect]
     Dosage: PO
     Route: 048
  7. ALUMINIUM/MAGNESIOUM HYDROXIDE [Suspect]
     Dosage: PO
     Route: 048
  8. COCAINE [Suspect]
     Dosage: PO
     Route: 048

REACTIONS (10)
  - BLOOD PRESSURE INCREASED [None]
  - COMA [None]
  - COMPLETED SUICIDE [None]
  - HEART RATE INCREASED [None]
  - HYPOTHERMIA [None]
  - INTENTIONAL MISUSE [None]
  - MIOSIS [None]
  - PULSE ABSENT [None]
  - RESPIRATORY ARREST [None]
  - RESPIRATORY RATE INCREASED [None]
